FAERS Safety Report 9471872 (Version 3)
Quarter: 2013Q4

REPORT INFORMATION
  Report Type: Report from Study
  Country: JP (occurrence: JP)
  Receive Date: 20130822
  Receipt Date: 20131003
  Transmission Date: 20140711
  Serious: Yes (Life-Threatening, Hospitalization)
  Sender: FDA-Public Use
  Company Number: JP-ROCHE-1239298

PATIENT
  Age: 80 Year
  Sex: Male

DRUGS (12)
  1. METHOXY POLYETHYLENE GLYCOL-EPOETIN BETA [Suspect]
     Indication: NEPHROGENIC ANAEMIA
     Route: 058
     Dates: start: 20121206
  2. ARTIST [Concomitant]
     Route: 048
  3. LIPITOR [Concomitant]
     Route: 048
  4. HALCION [Concomitant]
     Route: 048
  5. BIOFERMIN [Concomitant]
     Route: 048
  6. FERROMIA [Concomitant]
     Indication: GLOMERULONEPHRITIS CHRONIC
     Route: 048
     Dates: start: 20121206, end: 201302
  7. NATRIX [Concomitant]
     Route: 048
     Dates: start: 20130207
  8. LENDORMIN [Concomitant]
     Route: 048
     Dates: start: 20130523
  9. TAKEPRON [Concomitant]
     Route: 048
     Dates: start: 20130102
  10. ELASPOL [Concomitant]
     Route: 041
     Dates: start: 20130101, end: 20130104
  11. SOLDEM 1 [Concomitant]
     Route: 041
     Dates: start: 20130101, end: 20130104
  12. PRIMPERAN (JAPAN) [Concomitant]
     Route: 042
     Dates: start: 20130101, end: 20130104

REACTIONS (2)
  - Aortic aneurysm rupture [Recovering/Resolving]
  - Hypertension [Recovered/Resolved]
